FAERS Safety Report 19144786 (Version 1)
Quarter: 2021Q2

REPORT INFORMATION
  Report Type: Spontaneous
  Country: US (occurrence: US)
  Receive Date: 20210415
  Receipt Date: 20210415
  Transmission Date: 20210717
  Serious: Yes (Other)
  Sender: FDA-Public Use
  Company Number: None

PATIENT
  Age: 11 Year
  Sex: Male
  Weight: 31.6 kg

DRUGS (1)
  1. FERUMOXYTOL [Suspect]
     Active Substance: FERUMOXYTOL NON-STOICHIOMETRIC MAGNETITE
     Indication: MINERAL SUPPLEMENTATION
     Dosage: ?          OTHER FREQUENCY:ONE TIME;?
     Route: 041
     Dates: start: 20210322, end: 20210322

REACTIONS (2)
  - Anaphylactic reaction [None]
  - Infusion related reaction [None]

NARRATIVE: CASE EVENT DATE: 20210322
